FAERS Safety Report 4929505-1 (Version None)
Quarter: 2006Q1

REPORT INFORMATION
  Report Type: 
  Country: None (occurrence: None)
  Receive Date: 20060224
  Receipt Date: 20060208
  Transmission Date: 20060701
  Serious: Yes (Death)
  Sender: FDA-Public Use
  Company Number: DSA_26954_2005

PATIENT
  Age: 72 Year
  Sex: Male

DRUGS (16)
  1. TEMESTA [Suspect]
     Dosage: 1 MG Q DAY PO
     Route: 048
     Dates: start: 20040209, end: 20040209
  2. TEMESTA [Suspect]
     Dosage: 3 MG Q DAY PO
     Route: 048
     Dates: start: 20040210, end: 20040215
  3. TEMESTA [Suspect]
     Dosage: 2 MG Q DAY PO
     Route: 048
     Dates: start: 20040216, end: 20040218
  4. TEMESTA [Suspect]
     Dosage: 1.5 MG Q DAY PO
     Route: 048
     Dates: start: 20040219, end: 20040225
  5. TEMESTA [Suspect]
     Dosage: 1.5 MG Q DAY PO
     Route: 048
     Dates: start: 20040329, end: 20040411
  6. TEMESTA [Suspect]
     Dosage: 0.5 MG Q DAY PO
     Route: 048
     Dates: start: 20040226, end: 20040301
  7. CIPRALEX                  /DEN/ [Suspect]
     Indication: MAJOR DEPRESSION
     Dosage: 5 MG Q DAY PO
     Route: 048
     Dates: start: 20040226, end: 20040302
  8. CIPRALEX                /DEN/ [Suspect]
     Dosage: 10 MG Q DAY PO
     Route: 048
     Dates: start: 20040303, end: 20040324
  9. CIPRALEX                /DEN/ [Suspect]
     Dosage: 15 MG Q DAY PO
     Route: 048
     Dates: start: 20040325, end: 20040411
  10. REMERON [Suspect]
     Indication: MAJOR DEPRESSION
     Dosage: 30 MG Q DAY PO
     Route: 048
     Dates: start: 20040210, end: 20040215
  11. REMERSON        /NET/ [Suspect]
     Dosage: 60 MG Q DAY PO
     Route: 048
     Dates: start: 20040216, end: 20040411
  12. HALDOL [Suspect]
     Dosage: VAN Q DAY
     Dates: start: 20040210, end: 20040225
  13. HALDOL [Suspect]
     Dosage: 2 MG  Q DAY
     Dates: start: 20040226, end: 20040229
  14. HALDOL [Suspect]
     Dosage: 1 MG Q DAY
     Dates: start: 20040301, end: 20040307
  15. HALDOL [Suspect]
     Dosage: 2 MG Q DAY
     Dates: start: 20040329, end: 20040331
  16. HALDOL [Suspect]
     Dosage: 4 MG Q DAY
     Dates: start: 20040401, end: 20040411

REACTIONS (9)
  - AGITATION [None]
  - ANXIETY [None]
  - BIPOLAR I DISORDER [None]
  - COMPLETED SUICIDE [None]
  - DEPRESSIVE SYMPTOM [None]
  - FEELING ABNORMAL [None]
  - INJURY ASPHYXIATION [None]
  - MUTISM [None]
  - SLEEP DISORDER [None]
